FAERS Safety Report 7673525-3 (Version None)
Quarter: 2011Q3

REPORT INFORMATION
  Report Type: 
  Country: None (occurrence: None)
  Receive Date: 20110804
  Receipt Date: 20110728
  Transmission Date: 20111222
  Serious: Yes (Disabling)
  Sender: FDA-Public Use
  Company Number: TRP_07858_2011

PATIENT
  Age: 65 Year
  Sex: Male
  Weight: 74 kg

DRUGS (4)
  1. ENALAPRIL MALEATE [Concomitant]
  2. PEGINTERFERON ALFA-2A [Suspect]
     Indication: HEPATITIS C
     Dosage: (180 ?G 1X/WEEK SUBCUTANEOUS)
     Route: 058
  3. RIBAVIRIN [Suspect]
     Indication: HEPATITIS C
     Dosage: (1000 MG,DAILY ORAL)
     Route: 048
  4. HYDROCHLOROTHIAZIDE [Concomitant]

REACTIONS (6)
  - ANAEMIA [None]
  - OTOTOXICITY [None]
  - AUTOIMMUNE DISORDER [None]
  - SUDDEN HEARING LOSS [None]
  - RED BLOOD CELL SEDIMENTATION RATE INCREASED [None]
  - VESTIBULAR DISORDER [None]
